FAERS Safety Report 7520979-9 (Version None)
Quarter: 2011Q2

REPORT INFORMATION
  Report Type: 
  Country: None (occurrence: None)
  Receive Date: 20110603
  Receipt Date: 20100921
  Transmission Date: 20111010
  Serious: Yes (Other)
  Sender: FDA-Public Use
  Company Number: US-BAYER-US-2004-029819

PATIENT
  Age: 73 Year
  Sex: Female
  Weight: 54 kg

DRUGS (11)
  1. ARIMIDEX [Concomitant]
     Indication: OSTEOPOROSIS
     Dates: start: 20060705, end: 20090827
  2. CLIMARA PRO [Suspect]
     Indication: BREAST CANCER FEMALE
     Dosage: UNK MG/D, CONT
     Route: 062
     Dates: start: 19980120, end: 19980720
  3. ESTROGEN NOS [Suspect]
     Indication: HORMONE REPLACEMENT THERAPY
  4. XANAX [Concomitant]
     Indication: DEPRESSION
     Dosage: 0.25 TID PRN
  5. ZOLOFT [Concomitant]
     Indication: DEPRESSION
     Dosage: 50
     Dates: start: 20090827
  6. CELEXA [Concomitant]
     Indication: DEPRESSION
     Dates: start: 20030613
  7. CYCRIN [Suspect]
     Indication: HORMONE REPLACEMENT THERAPY
     Dates: start: 19980416, end: 19980720
  8. ESTROGENS CONJUGATED W/MEDROXYPROGEST ACETATE [Suspect]
     Indication: HORMONE REPLACEMENT THERAPY
  9. PREMARIN [Suspect]
     Indication: HORMONE REPLACEMENT THERAPY
  10. MEDROXYPROGESTERONE ACETATE [Suspect]
     Indication: HORMONE REPLACEMENT THERAPY
  11. LEXAPRO [Concomitant]
     Indication: DEPRESSION
     Dosage: 10 QD

REACTIONS (8)
  - BREAST CANCER IN SITU [None]
  - DEPRESSION [None]
  - AFFECT LABILITY [None]
  - SKIN DISORDER [None]
  - BREAST TENDERNESS [None]
  - STRESS [None]
  - INCISION SITE PAIN [None]
  - FATIGUE [None]
